FAERS Safety Report 18667381 (Version 1)
Quarter: 2020Q4

REPORT INFORMATION
  Report Type: Spontaneous
  Country: US (occurrence: US)
  Receive Date: 20201228
  Receipt Date: 20201228
  Transmission Date: 20210114
  Serious: Yes (Other)
  Sender: FDA-Public Use
  Company Number: US-AUROBINDO-AUR-APL-2020-048388

PATIENT
  Sex: Female
  Weight: 47.62 kg

DRUGS (1)
  1. BUPIVACAINE HYDROCHLORIDE INJECTION USP 0.25% (2.5 MG/ML) [Suspect]
     Active Substance: BUPIVACAINE HYDROCHLORIDE
     Indication: PRODUCT USED FOR UNKNOWN INDICATION
     Dosage: UNK
     Route: 042

REACTIONS (4)
  - Catheter site haematoma [Unknown]
  - Taste disorder [Unknown]
  - Urinary retention [Unknown]
  - Injection site haematoma [Unknown]
